FAERS Safety Report 4678337-0 (Version None)
Quarter: 2005Q2

REPORT INFORMATION
  Report Type: 
  Country: None (occurrence: None)
  Receive Date: 20050527
  Receipt Date: 20050516
  Transmission Date: 20051028
  Serious: Yes (Hospitalization)
  Sender: FDA-Public Use
  Company Number: HQWYE746616MAY05

PATIENT
  Age: 67 Year
  Sex: Male

DRUGS (20)
  1. RAPAMUNE (SIROLIMUS, TABLET) [Suspect]
     Indication: PROPHYLAXIS AGAINST TRANSPLANT REJECTION
     Dosage: 7 MG 1X PER 1 DAY, ORAL
     Route: 048
     Dates: start: 20050313
  2. MYCOPHENOLATE MOFETIL (MYCOPHENOLATE MOFETIL, ) [Suspect]
     Indication: PROPHYLAXIS AGAINST TRANSPLANT REJECTION
     Dosage: 1000 MG 2X PER 1 DAY,  ORAL
     Route: 048
  3. PREDNISONE [Suspect]
     Indication: PROPHYLAXIS AGAINST TRANSPLANT REJECTION
     Dosage: 30 MG 1X PER 1 DAY,  ORAL
     Route: 048
  4. ACETAMINOPHEN [Concomitant]
  5. ASPIRIN [Concomitant]
  6. ATENOLOL [Concomitant]
  7. ATORVASTATIN CALCIUM [Concomitant]
  8. CLONIDINE [Concomitant]
  9. DIPHENHYDRAMINE HCL [Concomitant]
  10. EPOETIN ALFA (EPOETIN ALFA) [Concomitant]
  11. FAMOTIDINE [Concomitant]
  12. FERROUS SULFATE TAB [Concomitant]
  13. FUROSEMIDE [Concomitant]
  14. HUMULIN 70/30 [Concomitant]
  15. NIFEDIPINE [Concomitant]
  16. POTASSIUM CHLORIDE [Concomitant]
  17. SPIRONOLACTONE [Concomitant]
  18. SULFAMETHOXAZOLE + TRIMETHOPRIM [Concomitant]
  19. TERAZOSIN (TERAZOSIN) [Concomitant]
  20. HUMULIN R [Concomitant]

REACTIONS (11)
  - ASTHENIA [None]
  - BLOOD CREATININE INCREASED [None]
  - BLOOD GLUCOSE INCREASED [None]
  - BLOOD POTASSIUM DECREASED [None]
  - BLOOD SODIUM DECREASED [None]
  - BLOOD UREA INCREASED [None]
  - DEPRESSED LEVEL OF CONSCIOUSNESS [None]
  - HAEMATOCRIT DECREASED [None]
  - HAEMOGLOBIN DECREASED [None]
  - RED BLOOD CELL COUNT DECREASED [None]
  - TROPONIN T INCREASED [None]
